FAERS Safety Report 4294951-9 (Version None)
Quarter: 2004Q1

REPORT INFORMATION
  Report Type: 
  Country: None (occurrence: None)
  Receive Date: 20040216
  Receipt Date: 20030310
  Transmission Date: 20041129
  Serious: No
  Sender: FDA-Public Use
  Company Number: US-GLAXOSMITHKLINE-A0399966A

PATIENT
  Age: 56 Year
  Sex: Female

DRUGS (1)
  1. LAMICTAL [Suspect]
     Dosage: 12.5MG PER DAY
     Route: 048
     Dates: start: 20030218, end: 20030221

REACTIONS (3)
  - DRUG HYPERSENSITIVITY [None]
  - PRURITUS [None]
  - RASH [None]
